FAERS Safety Report 15536303 (Version 1)
Quarter: 2018Q4

REPORT INFORMATION
  Report Type: Report from Study
  Country: US (occurrence: US)
  Receive Date: 20181022
  Receipt Date: 20181022
  Transmission Date: 20190205
  Serious: Yes (Hospitalization, Other)
  Sender: FDA-Public Use
  Company Number: US-BRISTOL-MYERS SQUIBB COMPANY-BMS-2018-088351

PATIENT
  Age: 59 Year
  Sex: Male

DRUGS (2)
  1. NIVOLUMAB [Suspect]
     Active Substance: NIVOLUMAB
     Indication: TONSIL CANCER
     Dosage: 3 MG/KG, UNK
     Route: 042
     Dates: start: 20180305
  2. IPILIMUMAB [Suspect]
     Active Substance: IPILIMUMAB
     Indication: TONSIL CANCER
     Dosage: 1 MG/KG, UNK
     Route: 042
     Dates: start: 20180305

REACTIONS (2)
  - Colitis [Recovered/Resolved]
  - Syncope [Recovered/Resolved]

NARRATIVE: CASE EVENT DATE: 20180710
